FAERS Safety Report 9808944 (Version 2)
Quarter: 2014Q1

REPORT INFORMATION
  Report Type: Spontaneous
  Country: FR (occurrence: FR)
  Receive Date: 20140110
  Receipt Date: 20140127
  Transmission Date: 20141002
  Serious: Yes (Hospitalization)
  Sender: FDA-Public Use
  Company Number: FR-PFIZER INC-2014003206

PATIENT
  Age: 57 Year
  Sex: Male

DRUGS (14)
  1. TAHOR [Suspect]
     Dosage: 10 MG, DAILY
  2. TAHOR [Interacting]
     Dosage: 80 MG, SINGLE
     Route: 048
     Dates: start: 20131217, end: 20131217
  3. BRILIQUE [Interacting]
     Dosage: 180 MG, SINGLE
     Route: 048
     Dates: start: 20131217, end: 20131217
  4. ASPEGIC [Concomitant]
     Dosage: 250 MG, SINGLE
     Route: 048
     Dates: start: 20131217, end: 20131217
  5. LOVENOX [Concomitant]
     Dosage: 8000 IU, SINGLE
     Dates: start: 20131217, end: 20131217
  6. AMLOR [Concomitant]
     Dosage: 5 MG, DAILY
  7. KARDEGIC [Concomitant]
     Dosage: 75 MG, DAILY
  8. NEBIVOLOL [Concomitant]
     Dosage: 5 MG, DAILY
  9. COVERSYL [Concomitant]
     Dosage: 10 MG, DAILY
  10. MIANSERIN [Concomitant]
     Dosage: 30 MG, DAILY
  11. SERESTA [Concomitant]
     Dosage: 50 MG, DAILY
  12. VITAMIN B1 [Concomitant]
  13. VITAMIN B6 [Concomitant]
  14. FOLIC ACID [Concomitant]

REACTIONS (2)
  - Drug interaction [Recovered/Resolved]
  - Rhabdomyolysis [Recovered/Resolved]
